FAERS Safety Report 7321853-3 (Version None)
Quarter: 2011Q1

REPORT INFORMATION
  Report Type: 
  Country: None (occurrence: None)
  Receive Date: 20110228
  Receipt Date: 20110215
  Transmission Date: 20110831
  Serious: Yes (Hospitalization)
  Sender: FDA-Public Use
  Company Number: PHHY2011JP12774

PATIENT
  Age: 64 Year
  Sex: Male
  Weight: 55.2 kg

DRUGS (4)
  1. DEXTROMETHORPHAN [Interacting]
     Dosage: 30 MG, UNK
  2. METOPROLOL [Suspect]
     Indication: HYPERTENSION
     Dosage: 40 MG, QD
  3. CARBOCISTEINE LYSINE [Concomitant]
  4. DEQUALINIUM CHLORIDE [Concomitant]

REACTIONS (8)
  - DRUG INTERACTION [None]
  - HEAD TITUBATION [None]
  - RESPIRATORY RATE INCREASED [None]
  - DYSARTHRIA [None]
  - TREMOR [None]
  - HYPERHIDROSIS [None]
  - MYOCLONUS [None]
  - AGITATION [None]
